FAERS Safety Report 5011234-X (Version None)
Quarter: 2006Q2

REPORT INFORMATION
  Report Type: 
  Country: None (occurrence: None)
  Receive Date: 20060523
  Receipt Date: 20060517
  Transmission Date: 20061013
  Serious: Yes (Hospitalization)
  Sender: FDA-Public Use
  Company Number: 231543K06USA

PATIENT
  Age: 55 Year
  Sex: Female
  Weight: 98.9 kg

DRUGS (12)
  1. REBIF [Suspect]
     Indication: MULTIPLE SCLEROSIS
     Dosage: 3 IN 1 WEEKS,
     Dates: start: 20060112, end: 20060202
  2. ATENOLOL [Concomitant]
  3. DYAZIDE [Concomitant]
  4. AMBIEN [Concomitant]
  5. ADVAIR (SERETIDE) [Concomitant]
  6. ASPIRIN [Concomitant]
  7. MULTIVITAMIN (MULTIVITAMIN /00831701/) [Concomitant]
  8. MINERALS (MINERALS NOS) [Concomitant]
  9. ALBUTEROL (SALBUTAMOL /00139501/) [Concomitant]
  10. CALCIUM (CALCIUM-SANDOZ /00009901/) [Concomitant]
  11. CLOBETASOL CREAM (CLOBETASOL) [Concomitant]
  12. ATROVENT [Concomitant]

REACTIONS (2)
  - DIARRHOEA HAEMORRHAGIC [None]
  - PYREXIA [None]
